FAERS Safety Report 10239175 (Version 2)
Quarter: 2014Q3

REPORT INFORMATION
  Report Type: Spontaneous
  Country: PR (occurrence: US)
  Receive Date: 20140616
  Receipt Date: 20140718
  Transmission Date: 20150326
  Serious: No
  Sender: FDA-Public Use
  Company Number: PR-PFIZER INC-2014162174

PATIENT
  Age: 7 Year
  Sex: Male

DRUGS (1)
  1. QUILLIVANT XR [Suspect]
     Active Substance: METHYLPHENIDATE HYDROCHLORIDE
     Dosage: 6 ML, 1X/DAY (7.00 AM) (25MG/5ML)
     Route: 048

REACTIONS (2)
  - Anxiety [Unknown]
  - Psychomotor hyperactivity [Unknown]
